FAERS Safety Report 7448924-5 (Version None)
Quarter: 2011Q2

REPORT INFORMATION
  Report Type: 
  Country: None (occurrence: None)
  Receive Date: 20110429
  Receipt Date: 20100830
  Transmission Date: 20111010
  Serious: No
  Sender: FDA-Public Use
  Company Number: US-ASTRAZENECA-2010SE40716

PATIENT
  Sex: Male
  Weight: 86.2 kg

DRUGS (8)
  1. NEXIUM [Suspect]
     Route: 048
  2. BYETA [Concomitant]
  3. PREDNISONE [Concomitant]
  4. NEXIUM [Suspect]
     Route: 048
  5. HYDROCHLOROTHIAZIDE [Concomitant]
  6. NEXIUM [Suspect]
     Route: 048
  7. INSULIN [Concomitant]
  8. POTASSIUM [Concomitant]

REACTIONS (4)
  - ABDOMINAL PAIN UPPER [None]
  - GASTROOESOPHAGEAL REFLUX DISEASE [None]
  - DRUG DOSE OMISSION [None]
  - DIARRHOEA [None]
